FAERS Safety Report 9865797 (Version 2)
Quarter: 2014Q1

REPORT INFORMATION
  Report Type: Spontaneous
  Country: US (occurrence: US)
  Receive Date: 20140203
  Receipt Date: 20140203
  Transmission Date: 20141002
  Serious: No
  Sender: FDA-Public Use
  Company Number: US-ALLERGAN-1310412US

PATIENT
  Age: 76 Year
  Sex: Female

DRUGS (7)
  1. GEMFIBROZIL [Concomitant]
     Indication: BLOOD CHOLESTEROL
  2. NEURONTIN [Concomitant]
     Indication: NEUROPATHY PERIPHERAL
  3. METFORMIN [Concomitant]
     Indication: DIABETES MELLITUS
  4. PANTAPRAZOLE [Concomitant]
     Indication: ULCER HAEMORRHAGE
  5. VITAMINS                           /00067501/ [Concomitant]
     Indication: PRODUCT USED FOR UNKNOWN INDICATION
  6. RESTASIS [Suspect]
     Indication: DRY EYE
     Dosage: 2 GTT, BID
     Route: 047
  7. COSOPT [Suspect]
     Indication: GLAUCOMA
     Dosage: 1 GTT, BID
     Route: 047

REACTIONS (4)
  - Skin wrinkling [Recovered/Resolved]
  - Erythema [Recovered/Resolved]
  - Eye irritation [Recovered/Resolved]
  - Hypersensitivity [Recovered/Resolved]
